FAERS Safety Report 12115343 (Version 2)
Quarter: 2016Q1

REPORT INFORMATION
  Report Type: Report from Study
  Country: RU (occurrence: RU)
  Receive Date: 20160225
  Receipt Date: 20160225
  Transmission Date: 20160526
  Serious: Yes (Death)
  Sender: FDA-Public Use
  Company Number: RU-SANOFI-AVENTIS-2010SA050143

PATIENT
  Age: 41 Year
  Sex: Male
  Weight: 59 kg

DRUGS (1)
  1. TERIFLUNOMIDE [Suspect]
     Active Substance: TERIFLUNOMIDE
     Indication: MULTIPLE SCLEROSIS RELAPSE
     Route: 048
     Dates: start: 20090209, end: 20100820

REACTIONS (1)
  - Cardiac failure acute [Fatal]

NARRATIVE: CASE EVENT DATE: 20100820
